FAERS Safety Report 8911496 (Version 3)
Quarter: 2012Q4

REPORT INFORMATION
  Report Type: 
  Country: US (occurrence: US)
  Receive Date: 20121115
  Receipt Date: 20121206
  Transmission Date: 20130627
  Serious: Yes (Other)
  Sender: FDA-Public Use
  Company Number: US-PFIZER INC-2012285884

PATIENT
  Age: 84 Year
  Sex: Female
  Weight: 77.1 kg

DRUGS (12)
  1. LYRICA [Suspect]
     Indication: BURNING SENSATION
     Dosage: 1 DF, 3x/day
     Dates: end: 2012
  2. LYRICA [Suspect]
     Dosage: 2 DF, 3x/day
     Dates: start: 2012
  3. LYRICA [Suspect]
     Dosage: 35 mg, 2x/day
  4. LYRICA [Suspect]
     Dosage: UNK, alternate day
     Dates: start: 2012, end: 20121112
  5. LYRICA [Suspect]
     Dosage: 75 mg, 1x/day
  6. LYRICA [Suspect]
     Dosage: 75 mg, 2x/day
     Dates: end: 2012
  7. LYRICA [Suspect]
     Dosage: 75 mg, every other day
     Dates: start: 2012
  8. LYRICA [Suspect]
     Dosage: 75 mg, UNK
     Dates: end: 2012
  9. SYNTHROID [Concomitant]
     Indication: THYROID DISORDER
     Dosage: 0.1 mg, daily
  10. AMLODIPINE BESILATE [Concomitant]
     Indication: BLOOD PRESSURE HIGH
     Dosage: 10 mg, daily
  11. POTASSIUM [Concomitant]
     Indication: BLOOD PRESSURE ABNORMAL
     Dosage: UNK
  12. HYDROCHLOROTHIAZIDE [Concomitant]
     Indication: BLOOD PRESSURE ABNORMAL
     Dosage: UNK

REACTIONS (19)
  - Urinary tract infection [Unknown]
  - Sinusitis [Unknown]
  - Infection [Unknown]
  - Dyspnoea [Unknown]
  - Vertigo [Unknown]
  - Feeling abnormal [Unknown]
  - Presyncope [Unknown]
  - Joint swelling [Recovered/Resolved]
  - Gait disturbance [Not Recovered/Not Resolved]
  - Malaise [Not Recovered/Not Resolved]
  - Nausea [Recovering/Resolving]
  - Vomiting [Unknown]
  - Eating disorder [Unknown]
  - Nervousness [Unknown]
  - Constipation [Recovering/Resolving]
  - Feeling abnormal [Unknown]
  - Tremor [Unknown]
  - Decreased appetite [Unknown]
  - Weight decreased [Unknown]
